FAERS Safety Report 25662423 (Version 1)
Quarter: 2025Q3

REPORT INFORMATION
  Report Type: Report from Study
  Country: CA (occurrence: CA)
  Receive Date: 20250810
  Receipt Date: 20250810
  Transmission Date: 20251021
  Serious: Yes (Other)
  Sender: ABBVIE
  Company Number: CA-ABBVIE-6405488

PATIENT
  Age: 43 Year
  Sex: Female

DRUGS (2)
  1. HUMIRA [Suspect]
     Active Substance: ADALIMUMAB
     Indication: Crohn^s disease
     Route: 058
     Dates: end: 2025
  2. HUMIRA [Suspect]
     Active Substance: ADALIMUMAB
     Route: 058

REACTIONS (9)
  - Ileocaecal resection [Unknown]
  - Intestinal anastomosis [Unknown]
  - Gastrointestinal motility disorder [Unknown]
  - Diarrhoea [Unknown]
  - Abdominal pain lower [Recovered/Resolved]
  - Dizziness [Unknown]
  - Intestinal fistula [Unknown]
  - Colorectostomy [Unknown]
  - Proctocolectomy [Unknown]

NARRATIVE: CASE EVENT DATE: 20250501
